FAERS Safety Report 16462458 (Version 2)
Quarter: 2024Q4

REPORT INFORMATION
  Report Type: Spontaneous
  Country: IT (occurrence: IT)
  Receive Date: 20190621
  Receipt Date: 20241007
  Transmission Date: 20250115
  Serious: Yes (Hospitalization, Disabling, Other)
  Sender: ACCORD
  Company Number: None

PATIENT
  Age: 72 Year
  Sex: Male

DRUGS (13)
  1. ALLOPURINOL [Interacting]
     Active Substance: ALLOPURINOL
     Indication: Product used for unknown indication
  2. FUROSEMIDE [Interacting]
     Active Substance: FUROSEMIDE
     Indication: Diuretic therapy
     Dosage: ALSO RECEIVED 50 MG/WEEK
  3. QUETIAPINE FUMARATE [Interacting]
     Active Substance: QUETIAPINE FUMARATE
     Indication: Neuropsychological symptoms
  4. BISOPROLOL [Interacting]
     Active Substance: BISOPROLOL\BISOPROLOL FUMARATE
     Indication: Product used for unknown indication
  5. ATORVASTATIN [Interacting]
     Active Substance: ATORVASTATIN
     Indication: Hypercholesterolaemia
  6. SERTRALINE [Suspect]
     Active Substance: SERTRALINE HYDROCHLORIDE
     Indication: Neuropsychological symptoms
  7. RANOLAZINE [Suspect]
     Active Substance: RANOLAZINE
     Indication: Angina pectoris
     Dates: start: 20110601
  8. OMEPRAZOLE [Interacting]
     Active Substance: OMEPRAZOLE
     Indication: Product used for unknown indication
  9. ASPIRIN [Suspect]
     Active Substance: ASPIRIN
     Indication: Product used for unknown indication
  10. NITROGLYCERIN [Suspect]
     Active Substance: NITROGLYCERIN
     Indication: Product used for unknown indication
     Route: 062
  11. VALSARTAN [Suspect]
     Active Substance: VALSARTAN
     Indication: Product used for unknown indication
  12. OMEGA 3 [Concomitant]
     Active Substance: CAPSAICIN
     Indication: Product used for unknown indication
  13. FUROSEMIDE [Interacting]
     Active Substance: FUROSEMIDE
     Indication: Diuretic therapy

REACTIONS (10)
  - Drug interaction [Recovered/Resolved]
  - Blood creatine phosphokinase increased [Recovered/Resolved]
  - Rhabdomyolysis [Recovered/Resolved]
  - Malaise [Recovered/Resolved]
  - Myalgia [Recovered/Resolved]
  - Asthenia [Recovered/Resolved]
  - Drop attacks [Unknown]
  - Nausea [Recovered/Resolved]
  - Myoglobin blood increased [Recovered/Resolved]
  - Vomiting [Recovered/Resolved]

NARRATIVE: CASE EVENT DATE: 20110901
